FAERS Safety Report 14930788 (Version 1)
Quarter: 2018Q2

REPORT INFORMATION
  Report Type: Spontaneous
  Country: FR (occurrence: FR)
  Receive Date: 20180524
  Receipt Date: 20180524
  Transmission Date: 20180711
  Serious: Yes (Other)
  Sender: FDA-Public Use
  Company Number: FR-MERCK KGAA-2048350

PATIENT
  Age: 68 Year
  Sex: Male

DRUGS (2)
  1. NOVOTHYROX [Suspect]
     Active Substance: LEVOTHYROXINE SODIUM
     Indication: HYPOTHYROIDISM
  2. NOVOTHYROX [Suspect]
     Active Substance: LEVOTHYROXINE SODIUM

REACTIONS (20)
  - Myalgia [None]
  - Disturbance in attention [None]
  - Anxiety [None]
  - Asthenia [None]
  - Headache [None]
  - Affective disorder [None]
  - Loss of personal independence in daily activities [None]
  - Psychiatric symptom [None]
  - Personal relationship issue [None]
  - Disturbance in social behaviour [None]
  - Amnesia [None]
  - Decreased activity [None]
  - Anger [None]
  - Blood thyroid stimulating hormone increased [None]
  - Arthralgia [None]
  - Social problem [None]
  - Glomerular filtration rate decreased [None]
  - Insomnia [None]
  - Major depression [None]
  - Affect lability [None]

NARRATIVE: CASE EVENT DATE: 20170127
